FAERS Safety Report 20800553 (Version 2)
Quarter: 2022Q2

REPORT INFORMATION
  Report Type: Spontaneous
  Country: US (occurrence: US)
  Receive Date: 20220509
  Receipt Date: 20220520
  Transmission Date: 20220721
  Serious: No
  Sender: FDA-Public Use
  Company Number: US-ORGANON-O2204USA001953

PATIENT
  Age: 30 Year
  Sex: Female
  Weight: 183.22 kg

DRUGS (1)
  1. NEXPLANON [Suspect]
     Active Substance: ETONOGESTREL
     Indication: Contraception
     Dosage: 1 IMPLANT (1 DOSAGE FORM ) IN LEFT UPPER ARM
     Route: 058
     Dates: start: 20210528, end: 20220412

REACTIONS (4)
  - Implant site injury [Recovered/Resolved]
  - Implant site pain [Unknown]
  - Device kink [Recovered/Resolved]
  - Device breakage [Recovered/Resolved]

NARRATIVE: CASE EVENT DATE: 20220401
